FAERS Safety Report 7946164-4 (Version None)
Quarter: 2011Q4

REPORT INFORMATION
  Report Type: 
  Country: None (occurrence: None)
  Receive Date: 20111129
  Receipt Date: 20111121
  Transmission Date: 20120403
  Serious: Yes (Other)
  Sender: FDA-Public Use
  Company Number: FR-GLAXOSMITHKLINE-B0764390A

PATIENT
  Sex: Female

DRUGS (7)
  1. RABEPRAZOLE SODIUM [Concomitant]
     Route: 065
  2. ACETAMINOPHEN [Concomitant]
     Route: 065
  3. FOLIC ACID [Concomitant]
     Route: 065
  4. LAMICTAL [Suspect]
     Indication: EPILEPSY
     Route: 048
     Dates: start: 20111116
  5. ZOLPIDEM TARTRATE [Concomitant]
     Route: 065
  6. PAROXETINE HCL [Concomitant]
     Route: 065
  7. FLECAINIDE ACETATE [Concomitant]
     Indication: ARRHYTHMIA
     Route: 065
     Dates: start: 20111101

REACTIONS (2)
  - PANCREATITIS [None]
  - LIPASE INCREASED [None]
